FAERS Safety Report 18961388 (Version 2)
Quarter: 2021Q2

REPORT INFORMATION
  Report Type: Spontaneous
  Country: US (occurrence: US)
  Receive Date: 20210302
  Receipt Date: 20210604
  Transmission Date: 20210717
  Serious: No
  Sender: FDA-Public Use
  Company Number: US-THERAPEUTICSMD-2021TMD00843

PATIENT
  Sex: Female
  Weight: 103.86 kg

DRUGS (3)
  1. ANNOVERA [Suspect]
     Active Substance: ETHINYL ESTRADIOL\SEGESTERONE ACETATE
     Indication: CONTRACEPTION
     Dosage: KEPT IN PLACE FOR 21 DAYS, REMOVED FOR 7 DAYS (FOR MENSES) AND THEN REINSERTED
     Route: 067
     Dates: start: 202008, end: 202101
  2. ALBUTEROL NEBULIZER TREATMENTS [Concomitant]
     Dosage: UNK, AS NEEDED
  3. ALBUTEROL INHALER [Concomitant]
     Active Substance: ALBUTEROL
     Dosage: UNK, AS NEEDED

REACTIONS (3)
  - Amenorrhoea [Not Recovered/Not Resolved]
  - Drug ineffective [Unknown]
  - Nausea [Unknown]
